FAERS Safety Report 26199673 (Version 1)
Quarter: 2025Q4

REPORT INFORMATION
  Report Type: Spontaneous
  Country: EU (occurrence: EU)
  Receive Date: 20251225
  Receipt Date: 20251225
  Transmission Date: 20260118
  Serious: Yes (Other)
  Sender: AUROBINDO
  Company Number: EU-AUROBINDO-AUR-APL-2018-054140

PATIENT
  Age: 50 Year
  Sex: Female

DRUGS (3)
  1. LETROZOLE [Suspect]
     Active Substance: LETROZOLE
     Indication: Breast cancer metastatic
     Dosage: UNK
     Route: 065
  2. FULVESTRANT [Suspect]
     Active Substance: FULVESTRANT
     Indication: Breast cancer metastatic
     Dosage: UNK
  3. PALBOCICLIB [Suspect]
     Active Substance: PALBOCICLIB
     Indication: Breast cancer metastatic
     Dosage: UNK
     Route: 061

REACTIONS (5)
  - Breast cancer recurrent [Unknown]
  - Malignant pleural effusion [Unknown]
  - Metastases to liver [Recovering/Resolving]
  - Neutropenia [Not Recovered/Not Resolved]
  - Metastases to pleura [Recovering/Resolving]

NARRATIVE: CASE EVENT DATE: 20160601
